FAERS Safety Report 11796547 (Version 1)
Quarter: 2015Q4

REPORT INFORMATION
  Report Type: Report from Study
  Country: US (occurrence: US)
  Receive Date: 20151203
  Receipt Date: 20151203
  Transmission Date: 20160305
  Serious: Yes (Hospitalization)
  Sender: FDA-Public Use
  Company Number: US-EISAI MEDICAL RESEARCH-EC-2015-011334

PATIENT
  Age: 62 Year
  Sex: Female
  Weight: 71.6 kg

DRUGS (18)
  1. LENVIMA [Suspect]
     Active Substance: LENVATINIB
     Indication: THYROID CANCER
     Route: 048
     Dates: start: 20151010, end: 20151105
  2. BUDESONIDE. [Concomitant]
     Active Substance: BUDESONIDE
  3. LORATADINE. [Concomitant]
     Active Substance: LORATADINE
  4. FENTANYL. [Concomitant]
     Active Substance: FENTANYL
  5. REMERON [Concomitant]
     Active Substance: MIRTAZAPINE
  6. LISINOPRIL AND HYDROCHLOROTHIAZIDE [Concomitant]
     Active Substance: HYDROCHLOROTHIAZIDE\LISINOPRIL
  7. OXYCODONE-ACETAMINOPHEN [Concomitant]
     Active Substance: ACETAMINOPHEN\OXYCODONE HYDROCHLORIDE
  8. FISH OIL [Concomitant]
     Active Substance: FISH OIL
  9. MIRTAZAPINE. [Concomitant]
     Active Substance: MIRTAZAPINE
  10. COMPAZINE [Concomitant]
     Active Substance: PROCHLORPERAZINE MALEATE
  11. ATORVASTATIN [Concomitant]
     Active Substance: ATORVASTATIN
  12. LEVOTHYROXINE. [Concomitant]
     Active Substance: LEVOTHYROXINE
  13. ONDANSETRON [Concomitant]
     Active Substance: ONDANSETRON
  14. CALCIUM [Concomitant]
     Active Substance: CALCIUM
  15. PRILOSEC [Concomitant]
     Active Substance: OMEPRAZOLE MAGNESIUM
  16. ASPIRIN. [Concomitant]
     Active Substance: ASPIRIN
  17. METOPROLOL [Concomitant]
     Active Substance: METOPROLOL
  18. PROCHLORPERAZINE. [Concomitant]
     Active Substance: PROCHLORPERAZINE

REACTIONS (6)
  - Diarrhoea [Unknown]
  - Blood pressure increased [Unknown]
  - Fatigue [Unknown]
  - Myalgia [Unknown]
  - Posterior reversible encephalopathy syndrome [Recovered/Resolved]
  - Decreased appetite [Unknown]

NARRATIVE: CASE EVENT DATE: 201510
